FAERS Safety Report 23500684 (Version 1)
Quarter: 2024Q1

REPORT INFORMATION
  Report Type: Spontaneous
  Country: US (occurrence: US)
  Receive Date: 20240208
  Receipt Date: 20240208
  Transmission Date: 20240410
  Serious: No
  Sender: FDA-Public Use
  Company Number: US-ABBVIE-5626617

PATIENT
  Sex: Female

DRUGS (1)
  1. REFRESH RELIEVA PF [Suspect]
     Active Substance: CARBOXYMETHYLCELLULOSE SODIUM\GLYCERIN
     Indication: Product used for unknown indication
     Dosage: STRENGTH CMC, GLYCERIN 0.5 PERCENT
     Route: 047

REACTIONS (3)
  - Eyelid margin crusting [Unknown]
  - Eye discharge [Unknown]
  - Conjunctivitis [Unknown]
